FAERS Safety Report 9187314 (Version 1)
Quarter: 2013Q1

REPORT INFORMATION
  Report Type: Report from Study
  Country: CA (occurrence: CA)
  Receive Date: 20130325
  Receipt Date: 20130325
  Transmission Date: 20140127
  Serious: Yes (Other)
  Sender: FDA-Public Use
  Company Number: CA-JNJFOC-20130309262

PATIENT
  Sex: Female
  Weight: 60 kg

DRUGS (3)
  1. REMICADE [Suspect]
     Indication: PRODUCT USED FOR UNKNOWN INDICATION
     Route: 042
     Dates: start: 201212
  2. REMICADE [Suspect]
     Indication: PRODUCT USED FOR UNKNOWN INDICATION
     Route: 042
     Dates: start: 2010
  3. HUMALOG [Concomitant]
     Route: 065

REACTIONS (5)
  - Breast mass [Unknown]
  - Type 1 diabetes mellitus [Unknown]
  - Diarrhoea haemorrhagic [Unknown]
  - Fatigue [Unknown]
  - Haemoglobin decreased [Unknown]
